FAERS Safety Report 7828514-2 (Version None)
Quarter: 2011Q4

REPORT INFORMATION
  Report Type: 
  Country: None (occurrence: None)
  Receive Date: 20111020
  Receipt Date: 20111020
  Transmission Date: 20120403
  Serious: Yes (Life-Threatening, Disabling)
  Sender: FDA-Public Use
  Company Number: None

PATIENT
  Age: 44 Year
  Sex: Male
  Weight: 59.42 kg

DRUGS (1)
  1. LEVOFLOXACIN -GENERIC- [Suspect]
     Indication: PNEUMONIA
     Dosage: 14 DAYS
     Route: 048
     Dates: start: 20110912, end: 20110926

REACTIONS (1)
  - ABDOMINAL PAIN UPPER [None]
